FAERS Safety Report 4621109-3 (Version None)
Quarter: 2005Q1

REPORT INFORMATION
  Report Type: 
  Country: None (occurrence: None)
  Receive Date: 20050328
  Receipt Date: 20050215
  Transmission Date: 20050727
  Serious: Yes (Hospitalization, Other)
  Sender: FDA-Public Use
  Company Number: 2004IC000784

PATIENT
  Age: 60 Year
  Sex: Male

DRUGS (10)
  1. TASMAR [Suspect]
     Indication: PARKINSON'S DISEASE
     Dosage: 100 MG; 3 TIMES A DAY; ORAL
     Route: 048
     Dates: end: 20040806
  2. PERGOLIDE MESYLATE [Suspect]
     Dosage: 4.5 GM
     Dates: start: 19980215
  3. CARBIDOPA AND LEVODOPA [Concomitant]
  4. AMANTADINE DULFATE [Concomitant]
  5. NACOM-SLOW RELEASE [Concomitant]
     Indication: PARKINSON'S DISEASE
     Dosage: 100 MG; 3 TIMES A DAY; ORAL
     Route: 048
     Dates: end: 20040806
  6. PERGOLIDE MESYLATE [Suspect]
     Indication: PARKINSON'S DISEASE
     Dosage: 4.5 GM
     Dates: start: 19980215
  7. CARBIDOPA AND LEVODOPA [Concomitant]
  8. AMANTADINE SULFATE [Concomitant]
  9. COMITESS [Concomitant]
  10. NACOM- SLOW RELEASE [Concomitant]

REACTIONS (2)
  - AORTIC VALVE SCLEROSIS [None]
  - HEPATIC ENZYME INCREASED [None]
